FAERS Safety Report 5481267-8 (Version None)
Quarter: 2007Q4

REPORT INFORMATION
  Report Type: 
  Country: None (occurrence: None)
  Receive Date: 20071005
  Receipt Date: 20071005
  Transmission Date: 20080405
  Serious: Yes (Death)
  Sender: FDA-Public Use
  Company Number: None

PATIENT
  Sex: Female
  Weight: 65.7716 kg

DRUGS (1)
  1. ISOVUE-M 200 [Suspect]
     Indication: SPINAL MYELOGRAM
     Dosage: 15 ML  ONCE  IT
     Route: 038
     Dates: start: 20070530, end: 20070530

REACTIONS (7)
  - APNOEA [None]
  - DYSTONIA [None]
  - MENINGITIS [None]
  - MYDRIASIS [None]
  - POOR QUALITY DRUG ADMINISTERED [None]
  - PUPIL FIXED [None]
  - THERAPEUTIC PRODUCT CONTAMINATION [None]
